FAERS Safety Report 15263780 (Version 1)
Quarter: 2018Q3

REPORT INFORMATION
  Report Type: Spontaneous
  Country: US (occurrence: US)
  Receive Date: 20180810
  Receipt Date: 20180810
  Transmission Date: 20181010
  Serious: No
  Sender: FDA-Public Use
  Company Number: US-ASTRAZENECA-2018SE94989

PATIENT
  Sex: Male

DRUGS (1)
  1. BRILINTA [Suspect]
     Active Substance: TICAGRELOR
     Indication: STENT PLACEMENT
     Dosage: EVERY 12 HOURS
     Route: 048
     Dates: start: 20180508

REACTIONS (3)
  - Contusion [Unknown]
  - Skin atrophy [Unknown]
  - Skin haemorrhage [Unknown]
